FAERS Safety Report 7591987-7 (Version None)
Quarter: 2011Q2

REPORT INFORMATION
  Report Type: 
  Country: None (occurrence: None)
  Receive Date: 20110606
  Receipt Date: 20100925
  Transmission Date: 20111010
  Serious: Yes (Disabling)
  Sender: FDA-Public Use
  Company Number: US-SEPTODONT-201000182

PATIENT
  Age: 40 Year
  Sex: Male
  Weight: 113.4 kg

DRUGS (2)
  1. LIDOCAINE HYDROCHLORIDE [Concomitant]
  2. SEPTOCAINE [Suspect]
     Indication: LOCAL ANAESTHESIA
     Dosage: 3 CARTRIDGES DENTAL
     Route: 004
     Dates: start: 20100209, end: 20100209

REACTIONS (1)
  - HYPOAESTHESIA ORAL [None]
